FAERS Safety Report 23724068 (Version 1)
Quarter: 2024Q2

REPORT INFORMATION
  Report Type: Spontaneous
  Country: JP (occurrence: JP)
  Receive Date: 20240409
  Receipt Date: 20240409
  Transmission Date: 20240716
  Serious: Yes (Death, Other)
  Sender: FDA-Public Use
  Company Number: JP-ABBVIE-5711748

PATIENT
  Age: 50 Year
  Sex: Male

DRUGS (4)
  1. RINVOQ [Suspect]
     Active Substance: UPADACITINIB
     Indication: Crohn^s disease
     Dosage: FORM STRENGTH 45 MILLIGRAM
     Route: 048
     Dates: start: 20240309, end: 20240404
  2. BETAMETHASONE + DEXCHLORPHENIRAMINE MALEATE [Concomitant]
     Indication: Product used for unknown indication
     Route: 048
  3. PENTAZOCINE HYDROCHLORIDE [Concomitant]
     Active Substance: PENTAZOCINE HYDROCHLORIDE
     Indication: Analgesic therapy
     Dosage: FREQUENCY TEXT: AS NEEDED
     Route: 048
  4. BUDESONIDE [Concomitant]
     Active Substance: BUDESONIDE
     Indication: Crohn^s disease
     Route: 048

REACTIONS (3)
  - Circulatory collapse [Fatal]
  - Colon operation [Unknown]
  - Crohn^s disease [Unknown]

NARRATIVE: CASE EVENT DATE: 20240101
